FAERS Safety Report 25534450 (Version 3)
Quarter: 2025Q3

REPORT INFORMATION
  Report Type: Spontaneous
  Country: EU (occurrence: EU)
  Receive Date: 20250709
  Receipt Date: 20250729
  Transmission Date: 20251020
  Serious: Yes (Hospitalization, Other)
  Sender: SANOFI AVENTIS
  Company Number: EU-SA-2025SA174503

PATIENT
  Age: 38 Year
  Sex: Male
  Weight: 96 kg

DRUGS (2)
  1. FABRAZYME [Suspect]
     Active Substance: AGALSIDASE BETA
     Indication: Fabry^s disease
     Dosage: 95 MG, QOW
     Route: 042
     Dates: start: 20180307
  2. FABRAZYME [Suspect]
     Active Substance: AGALSIDASE BETA
     Dosage: 95 MG, QOW
     Route: 041

REACTIONS (3)
  - Inflammatory marker increased [Recovering/Resolving]
  - Post procedural complication [Recovering/Resolving]
  - Renal transplant [Recovered/Resolved]

NARRATIVE: CASE EVENT DATE: 20250101
